FAERS Safety Report 18689319 (Version 13)
Quarter: 2023Q2

REPORT INFORMATION
  Report Type: Report from Study
  Country: BR (occurrence: BR)
  Receive Date: 20201231
  Receipt Date: 20230524
  Transmission Date: 20230721
  Serious: Yes (Hospitalization, Other)
  Sender: FDA-Public Use
  Company Number: BR-TAKEDA-2020TUS059962

PATIENT
  Age: 31 Year
  Sex: Male
  Weight: 46 kg

DRUGS (1)
  1. VEDOLIZUMAB [Suspect]
     Active Substance: VEDOLIZUMAB
     Indication: Crohn^s disease
     Dosage: 300 MILLIGRAM
     Route: 042
     Dates: start: 20180831

REACTIONS (7)
  - Pneumonia [Unknown]
  - Weight decreased [Unknown]
  - Viral infection [Unknown]
  - Product dose omission issue [Unknown]
  - Inappropriate schedule of product administration [Unknown]
  - Rhinitis [Unknown]
  - Influenza [Unknown]

NARRATIVE: CASE EVENT DATE: 20210316
